FAERS Safety Report 15955195 (Version 6)
Quarter: 2019Q2

REPORT INFORMATION
  Report Type: Spontaneous
  Country: US (occurrence: US)
  Receive Date: 20190213
  Receipt Date: 20190606
  Transmission Date: 20190711
  Serious: Yes (Death, Hospitalization)
  Sender: FDA-Public Use
  Company Number: US-PFIZER INC-2019055608

PATIENT
  Age: 84 Year
  Sex: Male

DRUGS (4)
  1. ELIQUIS [Concomitant]
     Active Substance: APIXABAN
     Indication: CARDIAC DISORDER
     Dosage: 5 MG, 2X/DAY (5MG TABLET TAKEN BY MOUTH PROBABLY TWICE DAILY)
     Route: 048
     Dates: end: 201905
  2. MULTAQ [Concomitant]
     Active Substance: DRONEDARONE
     Indication: CARDIAC DISORDER
     Dosage: 800 MG, DAILY (400MG TABLET-2 TABLETS TAKEN BY MOUTH DAILY)
     Route: 048
     Dates: end: 20190420
  3. PROPAFENONE. [Concomitant]
     Active Substance: PROPAFENONE
     Indication: CARDIAC DISORDER
     Dosage: 150 MG, 3X/DAY
     Route: 048
     Dates: start: 20190421
  4. XALKORI [Suspect]
     Active Substance: CRIZOTINIB
     Indication: LUNG CANCER METASTATIC
     Dosage: 250 MG, TWICE DAILY
     Route: 048
     Dates: start: 20190105, end: 201905

REACTIONS (12)
  - Dysphagia [Not Recovered/Not Resolved]
  - Hypoaesthesia [Unknown]
  - Pneumonia [Fatal]
  - Fatigue [Not Recovered/Not Resolved]
  - Constipation [Unknown]
  - Dysuria [Recovered/Resolved]
  - Diarrhoea [Unknown]
  - Vomiting [Recovered/Resolved]
  - Visual impairment [Unknown]
  - Weight fluctuation [Unknown]
  - Nausea [Recovered/Resolved]
  - Decreased appetite [Unknown]

NARRATIVE: CASE EVENT DATE: 2019
